FAERS Safety Report 7546309-4 (Version None)
Quarter: 2011Q2

REPORT INFORMATION
  Report Type: 
  Country: None (occurrence: None)
  Receive Date: 20110614
  Receipt Date: 20040611
  Transmission Date: 20111010
  Serious: Yes (Other)
  Sender: FDA-Public Use
  Company Number: PHFR2003GB03079

PATIENT
  Sex: Male

DRUGS (1)
  1. CLOZAPINE [Suspect]
     Indication: SCHIZOPHRENIA
     Dosage: 250 MG, DAILY
     Route: 048
     Dates: start: 20030729, end: 20030807

REACTIONS (8)
  - DIARRHOEA [None]
  - NASOPHARYNGITIS [None]
  - TACHYCARDIA [None]
  - NEUTROPENIA [None]
  - INFLUENZA LIKE ILLNESS [None]
  - HEADACHE [None]
  - RHINITIS [None]
  - BODY TEMPERATURE INCREASED [None]
